FAERS Safety Report 9929237 (Version 1)
Quarter: 2014Q1

REPORT INFORMATION
  Report Type: Spontaneous
  Country: US (occurrence: None)
  Receive Date: 20140225
  Receipt Date: 20140225
  Transmission Date: 20141002
  Serious: Yes (Death, Hospitalization)
  Sender: FDA-Public Use
  Company Number: 2014HINLIT0127

PATIENT
  Age: 41 Year
  Sex: Female

DRUGS (5)
  1. LITHIUM (LITHIUM) UNKNOWN [Suspect]
     Indication: PRODUCT USED FOR UNKNOWN INDICATION
  2. CLONAZEPAM (CLONAZEPAM) (CLONAZEPAM) [Suspect]
     Indication: PRODUCT USED FOR UNKNOWN INDICATION
  3. ZIPRASIDONE [Suspect]
     Indication: PRODUCT USED FOR UNKNOWN INDICATION
  4. SUXAMETHONIUM CHLORIDE [Suspect]
     Indication: ENDOTRACHEAL INTUBATION
  5. PROPOFOL (PROPOFOL) [Suspect]
     Indication: AGITATION

REACTIONS (4)
  - Neuroleptic malignant syndrome [None]
  - Hyperthermia malignant [None]
  - Acute respiratory failure [None]
  - Multi-organ failure [None]
